FAERS Safety Report 12966828 (Version 1)
Quarter: 2016Q4

REPORT INFORMATION
  Report Type: Spontaneous
  Country: FR (occurrence: FR)
  Receive Date: 20161123
  Receipt Date: 20161123
  Transmission Date: 20170207
  Serious: Yes (Other)
  Sender: FDA-Public Use
  Company Number: FR-UCBSA-2016043783

PATIENT
  Age: 0 Year
  Sex: Female
  Weight: 3.8 kg

DRUGS (1)
  1. VIMPAT [Suspect]
     Active Substance: LACOSAMIDE
     Indication: PRODUCT USED FOR UNKNOWN INDICATION
     Dosage: UNK
     Route: 064
     Dates: start: 20150616, end: 20160323

REACTIONS (2)
  - Foetal exposure during pregnancy [Unknown]
  - Resuscitation [Recovered/Resolved]

NARRATIVE: CASE EVENT DATE: 20150616
